FAERS Safety Report 25832178 (Version 1)
Quarter: 2025Q3

REPORT INFORMATION
  Report Type: Spontaneous
  Country: US (occurrence: US)
  Receive Date: 20250922
  Receipt Date: 20250922
  Transmission Date: 20251020
  Serious: No
  Sender: INCYTE
  Company Number: US-INCYTE CORPORATION-2025IN009974

PATIENT
  Age: 9 Year

DRUGS (1)
  1. JAKAFI [Suspect]
     Active Substance: RUXOLITINIB
     Indication: Acute lymphocytic leukaemia
     Dosage: 50 MILLIGRAM, BID, IN THE MORNING AND BEFORE BEDTIME FOR 14 DAYS ON, FOLLOWED BY 14 DAYS OFF FOR A 28-DAY CYCLE.

REACTIONS (4)
  - Product container issue [Unknown]
  - Product physical issue [Unknown]
  - Prescribed overdose [Unknown]
  - Off label use [Unknown]
